FAERS Safety Report 17107233 (Version 1)
Quarter: 2019Q4

REPORT INFORMATION
  Report Type: Spontaneous
  Country: US (occurrence: US)
  Receive Date: 20191203
  Receipt Date: 20191203
  Transmission Date: 20200122
  Serious: Yes (Other)
  Sender: FDA-Public Use
  Company Number: US-PTC THERAPEUTICS, INC.-US-2019PTC001454

PATIENT

DRUGS (1)
  1. EMFLAZA [Suspect]
     Active Substance: DEFLAZACORT
     Indication: MUSCULAR DYSTROPHY
     Dosage: 18 MG, QD
     Route: 048
     Dates: start: 20180810

REACTIONS (10)
  - Vitamin D abnormal [Unknown]
  - Cardiomyopathy [Unknown]
  - Speech disorder [Unknown]
  - Muscular weakness [Unknown]
  - Developmental delay [Unknown]
  - Nasal congestion [Unknown]
  - Tonsillar hypertrophy [Unknown]
  - Gait disturbance [Unknown]
  - Overweight [Unknown]
  - Weight increased [Unknown]
